FAERS Safety Report 8543039-7 (Version None)
Quarter: 2012Q3

REPORT INFORMATION
  Report Type: 
  Country: None (occurrence: None)
  Receive Date: 20120727
  Receipt Date: 20120716
  Transmission Date: 20120928
  Serious: Yes (Hospitalization, Other)
  Sender: FDA-Public Use
  Company Number: US-BAYER-2012-061727

PATIENT
  Age: 70 Year
  Sex: Male
  Weight: 74.84 kg

DRUGS (7)
  1. ASPIRIN [Suspect]
     Indication: PRODUCT USED FOR UNKNOWN INDICATION
     Dosage: 81 MG, UNK
  2. XARELTO [Interacting]
     Indication: ATRIAL FIBRILLATION
     Dosage: 20 MG, QD
     Dates: start: 20120501
  3. XARELTO [Interacting]
     Indication: CEREBROVASCULAR ACCIDENT PROPHYLAXIS
     Dosage: 20 MG, QD
     Dates: start: 20120613
  4. LASIX [Concomitant]
     Route: 048
     Dates: start: 20120501, end: 20120702
  5. AMIODARONE HYDROCHLORIDE [Concomitant]
     Route: 048
     Dates: start: 20120501
  6. METOPROLOL SUCCINATE [Concomitant]
     Route: 048
     Dates: start: 20120501
  7. ALDACTONE [Concomitant]
     Route: 048
     Dates: start: 20120501, end: 20120702

REACTIONS (8)
  - BLOOD CREATININE INCREASED [None]
  - CEREBRAL INFARCTION [None]
  - PROTHROMBIN TIME PROLONGED [None]
  - PLATELET COUNT INCREASED [None]
  - ACTIVATED PARTIAL THROMBOPLASTIN TIME PROLONGED [None]
  - GASTRIC ULCER HAEMORRHAGE [None]
  - HAEMOGLOBIN DECREASED [None]
  - HAEMATOCRIT DECREASED [None]
